FAERS Safety Report 7779776-1 (Version None)
Quarter: 2011Q3

REPORT INFORMATION
  Report Type: 
  Country: None (occurrence: None)
  Receive Date: 20110927
  Receipt Date: 20100309
  Transmission Date: 20111222
  Serious: No
  Sender: FDA-Public Use
  Company Number: US-ASTRAZENECA-2010SE52857

PATIENT
  Age: 20657 Day
  Weight: 110 kg

DRUGS (11)
  1. SEROQUEL [Suspect]
     Indication: ANGER
     Route: 048
     Dates: start: 20050228
  2. SEROQUEL [Suspect]
     Indication: ANXIETY
     Route: 048
     Dates: start: 20050228
  3. ACETAMINOPHEN W/ CODEINE [Concomitant]
     Dosage: 60-240 MG DAILY
     Route: 048
     Dates: start: 19950626
  4. PSYLLIUM HYD MUCIL [Concomitant]
     Dosage: MIX 1 TABLESPOONFUL IN 8OZ LIQUID TWICE A DAY
     Dates: start: 20050505
  5. PSEUDOEPHEDRINE HCL [Concomitant]
     Indication: PULMONARY CONGESTION
     Dosage: 30-120 MG DAILY
     Route: 048
     Dates: start: 20001227
  6. SEROQUEL [Suspect]
     Indication: AFFECTIVE DISORDER
     Route: 048
     Dates: start: 20050228
  7. SEROQUEL [Suspect]
     Indication: IRRITABILITY
     Route: 048
     Dates: start: 20050228
  8. PSEUDOEPHEDRINE HCL [Concomitant]
     Indication: COUGH
     Dosage: 30-120 MG DAILY
     Route: 048
     Dates: start: 20001227
  9. PAROXETINE HCL [Concomitant]
     Indication: DEPRESSION
     Dosage: 10-30 MG DAILY
     Route: 048
     Dates: start: 19980408
  10. SEROQUEL [Suspect]
     Indication: SLEEP DISORDER
     Route: 048
     Dates: start: 20050228
  11. SEROQUEL [Suspect]
     Indication: AGITATION
     Route: 048
     Dates: start: 20050228

REACTIONS (4)
  - CONSTIPATION [None]
  - WOUND [None]
  - POST-TRAUMATIC STRESS DISORDER [None]
  - DIABETES MELLITUS [None]
